FAERS Safety Report 8561155-0 (Version None)
Quarter: 2012Q3

REPORT INFORMATION
  Report Type: 
  Country: None (occurrence: None)
  Receive Date: 20120802
  Receipt Date: 20120720
  Transmission Date: 20120928
  Serious: Yes (Hospitalization)
  Sender: FDA-Public Use
  Company Number: US-ACTELION-A-NJ2012-67802

PATIENT
  Age: 38 Year
  Sex: Female

DRUGS (5)
  1. EPOPROSTENOL SODIUM [Suspect]
     Indication: PULMONARY ARTERIAL HYPERTENSION
     Dosage: 14 NG/KG, PER MIN
     Route: 041
     Dates: start: 20120530
  2. TRACLEER [Suspect]
     Indication: PULMONARY ARTERIAL HYPERTENSION
     Dosage: UNK
     Route: 048
     Dates: start: 20101223
  3. COUMADIN [Concomitant]
  4. ALDACTONE [Concomitant]
  5. SILDENAFIL [Concomitant]

REACTIONS (6)
  - DEVICE DISLOCATION [None]
  - DYSPNOEA [None]
  - DEVICE ISSUE [None]
  - DEVICE OCCLUSION [None]
  - ABDOMINAL DISTENSION [None]
  - NO ADVERSE EVENT [None]
